FAERS Safety Report 24736764 (Version 1)
Quarter: 2024Q4

REPORT INFORMATION
  Report Type: Report from Study
  Country: US (occurrence: US)
  Receive Date: 20241216
  Receipt Date: 20241216
  Transmission Date: 20250114
  Serious: Yes (Disabling)
  Sender: EMD SERONO INC
  Company Number: US-Merck Healthcare KGaA-2024051952

PATIENT
  Sex: Female

DRUGS (2)
  1. MAVENCLAD [Suspect]
     Active Substance: CLADRIBINE
     Indication: Multiple sclerosis
     Dosage: YEAR ONE MONTH ONE THERAPY
  2. MAVENCLAD [Suspect]
     Active Substance: CLADRIBINE
     Dosage: YEAR ONE MONTH TWO THERAPY

REACTIONS (6)
  - Bedridden [Unknown]
  - Blood test abnormal [Unknown]
  - Dehydration [Unknown]
  - Infection [Unknown]
  - Subcutaneous abscess [Unknown]
  - Skin disorder [Unknown]
